FAERS Safety Report 7445172-X (Version None)
Quarter: 2011Q2

REPORT INFORMATION
  Report Type: 
  Country: None (occurrence: None)
  Receive Date: 20110429
  Receipt Date: 20110418
  Transmission Date: 20111010
  Serious: Yes (Hospitalization)
  Sender: FDA-Public Use
  Company Number: RU-SANOFI-AVENTIS-2011SA021990

PATIENT
  Age: 71 Year
  Sex: Male

DRUGS (5)
  1. DRONEDARONE HCL [Suspect]
     Indication: ATRIAL FIBRILLATION
     Route: 048
     Dates: start: 20101227, end: 20110406
  2. DIGOXIN [Concomitant]
  3. BISOPROLOL [Concomitant]
  4. WARFARIN [Concomitant]
  5. PERINDOPRIL [Concomitant]

REACTIONS (1)
  - SOPOR [None]
